FAERS Safety Report 6733688-0 (Version None)
Quarter: 2010Q2

REPORT INFORMATION
  Report Type: 
  Country: None (occurrence: None)
  Receive Date: 20100520
  Receipt Date: 20100513
  Transmission Date: 20101027
  Serious: Yes (Other)
  Sender: FDA-Public Use
  Company Number: US-PFIZER INC-2010044176

PATIENT
  Sex: Female

DRUGS (6)
  1. GLYNASE [Suspect]
     Indication: DIABETES MELLITUS
     Dosage: 1 PILL
     Dates: start: 19920101
  2. GLYNASE [Suspect]
     Dosage: 2 PILLS
  3. GLYNASE [Suspect]
     Dosage: THREE TABLETS OF 1.5 MG A DAY
  4. GLYNASE [Suspect]
     Dosage: 4 TO 4.5 PILLS
  5. GLIBENCLAMIDE [Suspect]
     Indication: DIABETES MELLITUS
  6. PENICILLIN NOS [Concomitant]

REACTIONS (9)
  - AMNESIA [None]
  - ARTHROPOD STING [None]
  - BLINDNESS [None]
  - BLOOD GLUCOSE INCREASED [None]
  - COCCIDIOIDOMYCOSIS [None]
  - HEADACHE [None]
  - INFECTION PARASITIC [None]
  - MALAISE [None]
  - MUSCLE SPASMS [None]
